FAERS Safety Report 17987015 (Version 1)
Quarter: 2020Q3

REPORT INFORMATION
  Report Type: Report from Study
  Country: None (occurrence: US)
  Receive Date: 20200706
  Receipt Date: 20200706
  Transmission Date: 20201103
  Serious: Yes (Other)
  Sender: FDA-Public Use
  Company Number: US-ABBVIE-19K-163-2746733-00

PATIENT
  Age: 73 Year
  Sex: Female

DRUGS (1)
  1. HUMIRA [Suspect]
     Active Substance: ADALIMUMAB
     Indication: UVEITIS
     Route: 058
     Dates: start: 2016

REACTIONS (4)
  - Osteoarthritis [Not Recovered/Not Resolved]
  - Off label use [Unknown]
  - Cholecystectomy [Unknown]
  - Arthritis [Unknown]

NARRATIVE: CASE EVENT DATE: 201912
